FAERS Safety Report 5312021-5 (Version None)
Quarter: 2007Q2

REPORT INFORMATION
  Report Type: 
  Country: None (occurrence: None)
  Receive Date: 20070430
  Receipt Date: 20060803
  Transmission Date: 20071010
  Serious: No
  Sender: FDA-Public Use
  Company Number: 2006UW15543

PATIENT
  Age: 40 Year
  Sex: Female
  Weight: 49.9 kg

DRUGS (6)
  1. NEXIUM [Suspect]
     Indication: HIATUS HERNIA
     Route: 048
     Dates: start: 20060802
  2. NEXIUM [Suspect]
     Indication: GASTROOESOPHAGEAL REFLUX DISEASE
     Route: 048
     Dates: start: 20060802
  3. PERCOCET [Concomitant]
  4. XANAX [Concomitant]
  5. RESTORIL [Concomitant]
  6. PROVENTIL-HFA [Concomitant]
     Indication: ASTHMA
     Route: 055

REACTIONS (2)
  - DIZZINESS [None]
  - FEELING DRUNK [None]
